FAERS Safety Report 8297909 (Version 2)
Quarter: 2012Q4

REPORT INFORMATION
  Report Type: 
  Country: US (occurrence: US)
  Receive Date: 20111219
  Receipt Date: 20120921
  Transmission Date: 20130627
  Serious: Yes (Hospitalization)
  Sender: FDA-Public Use
  Company Number: US-US-EMD SERONO, INC.-7099216

PATIENT
  Age: 42 None
  Sex: Female
  Weight: 58 kg

DRUGS (7)
  1. REBIF [Suspect]
     Indication: MULTIPLE SCLEROSIS
     Route: 058
     Dates: start: 20110307, end: 201106
  2. REBIF [Suspect]
     Route: 058
     Dates: start: 20111024, end: 201111
  3. REBIF [Suspect]
     Dates: start: 201203
  4. PREDNISONE [Suspect]
     Indication: PRODUCT USED FOR UNKNOWN INDICATION
     Route: 048
  5. VICODIN [Concomitant]
     Indication: BACK PAIN
  6. VICODIN [Concomitant]
     Indication: PAIN IN EXTREMITY
  7. GABAPENTIN [Concomitant]
     Indication: PRODUCT USED FOR UNKNOWN INDICATION

REACTIONS (7)
  - Duodenal ulcer haemorrhage [Recovered/Resolved]
  - Anger [Unknown]
  - Mobility decreased [Unknown]
  - Fall [Unknown]
  - Muscular weakness [Unknown]
  - Anxiety [Unknown]
  - Depression [Unknown]
